FAERS Safety Report 5640896-9 (Version None)
Quarter: 2008Q1

REPORT INFORMATION
  Report Type: 
  Country: None (occurrence: None)
  Receive Date: 20080227
  Receipt Date: 20080222
  Transmission Date: 20080703
  Serious: Yes (Hospitalization)
  Sender: FDA-Public Use
  Company Number: B0509315A

PATIENT
  Age: 7 Year
  Sex: Male
  Weight: 22.2 kg

DRUGS (1)
  1. RELENZA [Suspect]
     Indication: INFLUENZA
     Dosage: 10MG TWICE PER DAY
     Route: 055
     Dates: start: 20080204, end: 20080208

REACTIONS (5)
  - ABDOMINAL PAIN [None]
  - ACETONAEMIA [None]
  - BODY TEMPERATURE INCREASED [None]
  - DELIRIUM [None]
  - EUPHORIC MOOD [None]
